FAERS Safety Report 7639516-3 (Version None)
Quarter: 2011Q3

REPORT INFORMATION
  Report Type: 
  Country: None (occurrence: None)
  Receive Date: 20110727
  Receipt Date: 20110527
  Transmission Date: 20111222
  Serious: Yes (Hospitalization)
  Sender: FDA-Public Use
  Company Number: DE-GLAXOSMITHKLINE-B0703527B

PATIENT
  Sex: Female
  Weight: 90 kg

DRUGS (5)
  1. DARBEPOETIN ALFA [Concomitant]
  2. TOPOTECAN [Suspect]
     Indication: OVARIAN CANCER RECURRENT
     Dosage: 2.61MG PER DAY
     Route: 042
     Dates: start: 20110214, end: 20110617
  3. BLINDED TRIAL MEDICATION [Suspect]
     Indication: OVARIAN CANCER RECURRENT
     Route: 048
     Dates: start: 20110219, end: 20110627
  4. PEGFILGRASTIM [Concomitant]
  5. FILGRASTIM [Concomitant]

REACTIONS (1)
  - VAGINAL HAEMORRHAGE [None]
